FAERS Safety Report 20646055 (Version 1)
Quarter: 2022Q1

REPORT INFORMATION
  Report Type: Spontaneous
  Country: US (occurrence: US)
  Receive Date: 20220329
  Receipt Date: 20220329
  Transmission Date: 20220423
  Serious: No
  Sender: FDA-Public Use
  Company Number: US-UNITED THERAPEUTICS-UNT-2022-004216

PATIENT
  Sex: Male

DRUGS (2)
  1. TYVASO [Suspect]
     Active Substance: TREPROSTINIL
     Indication: Pulmonary arterial hypertension
     Dosage: 18-72 ?G, QID
     Dates: start: 20211206
  2. TYVASO [Suspect]
     Active Substance: TREPROSTINIL
     Dosage: 60 ?G, 5 TIMES DAILY
     Dates: start: 20211208

REACTIONS (5)
  - Constipation [Unknown]
  - Therapeutic response shortened [Unknown]
  - Device malfunction [Unknown]
  - Device malfunction [Unknown]
  - Off label use [Unknown]
